FAERS Safety Report 25041122 (Version 1)
Quarter: 2025Q1

REPORT INFORMATION
  Report Type: Report from Study
  Country: US (occurrence: US)
  Receive Date: 20250305
  Receipt Date: 20250305
  Transmission Date: 20250408
  Serious: Yes (Other)
  Sender: RANBAXY
  Company Number: US-SUN PHARMACEUTICAL INDUSTRIES LTD-2025R1-497172

PATIENT
  Age: 24 Year
  Sex: Male

DRUGS (1)
  1. PAZOPANIB [Suspect]
     Active Substance: PAZOPANIB
     Indication: Hereditary haemorrhagic telangiectasia
     Route: 065

REACTIONS (3)
  - Therapy cessation [Unknown]
  - Alopecia [Unknown]
  - Back pain [Unknown]
